FAERS Safety Report 16290998 (Version 1)
Quarter: 2019Q2

REPORT INFORMATION
  Report Type: Spontaneous
  Country: US (occurrence: US)
  Receive Date: 20190404
  Receipt Date: 20190404
  Transmission Date: 20190711
  Serious: Yes (Hospitalization)
  Sender: FDA-Public Use
  Company Number: None

PATIENT
  Age: 67 Year
  Sex: Male
  Weight: 88 kg

DRUGS (2)
  1. SACUBITRIL/VALSARTAN [Suspect]
     Active Substance: SACUBITRIL\VALSARTAN
     Indication: CARDIAC FAILURE CONGESTIVE
     Route: 048
     Dates: start: 20190221, end: 20190306
  2. FUROSEMIDE. [Suspect]
     Active Substance: FUROSEMIDE
     Indication: CARDIAC FAILURE CONGESTIVE
     Route: 048
     Dates: start: 20181109, end: 20190306

REACTIONS (8)
  - Dehydration [None]
  - Dizziness [None]
  - Hypokalaemia [None]
  - Acute kidney injury [None]
  - Hypotension [None]
  - Polyuria [None]
  - Escherichia urinary tract infection [None]
  - Vision blurred [None]

NARRATIVE: CASE EVENT DATE: 20190304
